FAERS Safety Report 23530390 (Version 5)
Quarter: 2024Q3

REPORT INFORMATION
  Report Type: Spontaneous
  Country: US (occurrence: US)
  Receive Date: 20240216
  Receipt Date: 20240710
  Transmission Date: 20241016
  Serious: Yes (Hospitalization, Disabling, Other)
  Sender: SANOFI AVENTIS
  Company Number: US-SA-SAC20240214000810

PATIENT
  Age: 60 Year
  Sex: Female
  Weight: 58.957 kg

DRUGS (26)
  1. ARAVA [Suspect]
     Active Substance: LEFLUNOMIDE
     Indication: Rheumatoid arthritis
     Dosage: UNK; GAP OF 1.5 YEARS IN BETWEEN
     Dates: start: 2007, end: 2016
  2. ARAVA [Suspect]
     Active Substance: LEFLUNOMIDE
     Dosage: 1 DF, QD
     Route: 048
     Dates: start: 20220216, end: 20220311
  3. ACTEMRA [Concomitant]
     Active Substance: TOCILIZUMAB
     Indication: Rheumatoid arthritis
     Dosage: 162 MG, QOW
  4. CELEBREX [Concomitant]
     Active Substance: CELECOXIB
     Dosage: 200 MG, BID
     Route: 048
  5. PREDNISONE [Concomitant]
     Active Substance: PREDNISONE
  6. ADVIL [Concomitant]
     Active Substance: IBUPROFEN\IBUPROFEN SODIUM
     Dosage: UNK UNK, PRN
  7. CHOLECALCIFEROL [Concomitant]
     Active Substance: CHOLECALCIFEROL
     Dosage: UNK
  8. METHOTREXATE [Concomitant]
     Active Substance: METHOTREXATE
     Indication: Rheumatoid arthritis
     Dosage: UNK
     Dates: end: 20220216
  9. LIPITOR [Concomitant]
     Active Substance: ATORVASTATIN CALCIUM
     Dosage: UNK
  10. PROMETHAZINE DM [Concomitant]
     Active Substance: DEXTROMETHORPHAN HYDROBROMIDE\PROMETHAZINE HYDROCHLORIDE
     Dosage: 5 ML, TID
     Route: 048
  11. SOLU-MEDROL [Concomitant]
     Active Substance: METHYLPREDNISOLONE SODIUM SUCCINATE
     Dosage: UNK
  12. LOVASTATIN [Concomitant]
     Active Substance: LOVASTATIN
     Dosage: UNK
  13. POLYSPORIN [Concomitant]
     Active Substance: BACITRACIN ZINC\POLYMYXIN B SULFATE
     Dosage: UNK
     Route: 047
  14. HEPARIN [Concomitant]
     Active Substance: HEPARIN SODIUM
     Dosage: UNK
  15. GLUCAGEN [Concomitant]
     Active Substance: GLUCAGON HYDROCHLORIDE
     Dosage: UNK
     Route: 030
  16. ACETAMINOPHEN [Concomitant]
     Active Substance: ACETAMINOPHEN
     Dosage: 650 MG, Q4H
     Route: 048
  17. MORPHINE [Concomitant]
     Active Substance: MORPHINE
     Dosage: 2 MG, Q4H
     Route: 042
  18. MORPHINE [Concomitant]
     Active Substance: MORPHINE
     Dosage: 4 MG, Q4H
     Route: 042
  19. CYCLOSPORINE [Concomitant]
     Active Substance: CYCLOSPORINE
     Dosage: UNK UNK, BID
  20. PREDNISOLONE ACETATE [Concomitant]
     Active Substance: PREDNISOLONE ACETATE
     Dosage: UNK UNK, QID
  21. ERYTHROMYCIN [Concomitant]
     Active Substance: ERYTHROMYCIN
     Dosage: UNK UNK, QID
  22. ATARAX [Concomitant]
     Active Substance: HYDROXYZINE HYDROCHLORIDE
     Dosage: 25 MG, TID
     Route: 048
  23. IMMUNE GLOBULIN [Concomitant]
     Dosage: 45 G
     Route: 042
  24. IPRATROPIUM BROMIDE AND ALBUTEROL SULFATE [Concomitant]
     Active Substance: ALBUTEROL SULFATE\IPRATROPIUM BROMIDE
     Dosage: 3 ML, QID
     Route: 045
  25. FLOXIN [Concomitant]
     Active Substance: OFLOXACIN
     Dosage: 3 DROP, BID
  26. TOCILIZUMAB [Concomitant]
     Active Substance: TOCILIZUMAB
     Dosage: UNK

REACTIONS (41)
  - Loss of personal independence in daily activities [Unknown]
  - Blindness unilateral [Unknown]
  - Blindness [Unknown]
  - Stevens-Johnson syndrome [Unknown]
  - Ocular hyperaemia [Unknown]
  - Oral mucosal blistering [Unknown]
  - Lip swelling [Unknown]
  - Dry mouth [Unknown]
  - Stomatitis [Unknown]
  - Rash maculo-papular [Unknown]
  - Pyrexia [Unknown]
  - Pain [Unknown]
  - Conjunctivitis [Unknown]
  - Vulvovaginal injury [Unknown]
  - Eye pain [Not Recovered/Not Resolved]
  - Corneal neovascularisation [Unknown]
  - Swollen tongue [Unknown]
  - Wound [Unknown]
  - Eye infection [Unknown]
  - Dysphagia [Unknown]
  - Lip exfoliation [Unknown]
  - Dry eye [Unknown]
  - Punctate keratitis [Unknown]
  - Corneal scar [Unknown]
  - Pigmentation disorder [Unknown]
  - Skin exfoliation [Unknown]
  - Toxic epidermal necrolysis [Unknown]
  - Glaucoma [Unknown]
  - Intraocular pressure increased [Unknown]
  - Rash [Unknown]
  - Cataract [Unknown]
  - Pain [Unknown]
  - Burning sensation [Unknown]
  - Insomnia [Unknown]
  - Eye discharge [Unknown]
  - Trichiasis [Unknown]
  - Coordination abnormal [Unknown]
  - Joint range of motion decreased [Unknown]
  - SARS-CoV-2 test positive [Unknown]
  - Asthenia [Unknown]
  - Joint effusion [Unknown]

NARRATIVE: CASE EVENT DATE: 20220101
